FAERS Safety Report 5161466-5 (Version None)
Quarter: 2006Q4

REPORT INFORMATION
  Report Type: 
  Country: None (occurrence: None)
  Receive Date: 20061130
  Receipt Date: 20060814
  Transmission Date: 20070319
  Serious: Yes (Hospitalization)
  Sender: FDA-Public Use
  Company Number: US-GLAXOSMITHKLINE-A0616732A

PATIENT
  Age: 47 Year
  Sex: Female

DRUGS (5)
  1. WELLBUTRIN XL [Suspect]
     Indication: DEPRESSION
     Dosage: 150MG PER DAY
     Route: 048
     Dates: start: 20060801, end: 20060801
  2. ZOLOFT [Concomitant]
  3. SYNTHROID [Concomitant]
  4. TENORETIC 100 [Concomitant]
  5. XANAX [Concomitant]

REACTIONS (2)
  - CONVULSION [None]
  - INSOMNIA [None]
